FAERS Safety Report 25958178 (Version 1)
Quarter: 2025Q4

REPORT INFORMATION
  Report Type: Spontaneous
  Country: CN (occurrence: CN)
  Receive Date: 20251024
  Receipt Date: 20251024
  Transmission Date: 20260118
  Serious: Yes (Hospitalization)
  Sender: ELI LILLY AND COMPANY
  Company Number: CN-Merck Healthcare KGaA-2025052412

PATIENT
  Age: 35 Year
  Sex: Male
  Weight: 53 kg

DRUGS (4)
  1. ERBITUX [Suspect]
     Active Substance: CETUXIMAB
     Indication: Colon cancer
     Dosage: 850 MG, UNKNOWN
     Route: 041
     Dates: start: 20250828, end: 20250828
  2. OXALIPLATIN [Suspect]
     Active Substance: OXALIPLATIN
     Indication: Colon cancer
     Dosage: 150 MG, DAILY
     Route: 065
     Dates: start: 20250828, end: 20250828
  3. FLUOROURACIL [Suspect]
     Active Substance: FLUOROURACIL
     Indication: Colon cancer
     Dosage: 30 ML, DAILY
     Route: 065
     Dates: start: 20250828, end: 20250828
  4. FLUOROURACIL [Suspect]
     Active Substance: FLUOROURACIL
     Dosage: 170 ML, DAILY
     Route: 065
     Dates: start: 20250828, end: 20250828

REACTIONS (1)
  - Myelosuppression [Unknown]

NARRATIVE: CASE EVENT DATE: 20250928
